FAERS Safety Report 6874661-1 (Version None)
Quarter: 2010Q3

REPORT INFORMATION
  Report Type: 
  Country: None (occurrence: None)
  Receive Date: 20100722
  Receipt Date: 20100708
  Transmission Date: 20110219
  Serious: Yes (Hospitalization)
  Sender: FDA-Public Use
  Company Number: 2010P1000224

PATIENT
  Age: 84 Year
  Sex: Female
  Weight: 48.5349 kg

DRUGS (8)
  1. FENTANYL-25 [Suspect]
     Indication: MULTIPLE MYELOMA
     Dosage: 25 MCG/HR; 1 PATCH Q72H; TDER
     Route: 062
  2. HYDROCODONE BITARTRATE [Concomitant]
  3. SYNTHROID [Concomitant]
  4. PANTOPRAZOLE [Concomitant]
  5. LYRICA [Concomitant]
  6. FOLIC ACID [Concomitant]
  7. STOOL SOFTENER [Concomitant]
  8. MIRALAX (POLYTHYLENE GLYCOL) [Concomitant]

REACTIONS (12)
  - CYSTITIS [None]
  - DEHYDRATION [None]
  - DRUG DOSE OMISSION [None]
  - DRUG EFFECT DECREASED [None]
  - INSOMNIA [None]
  - MALAISE [None]
  - NAUSEA [None]
  - NERVOUSNESS [None]
  - PRURITUS [None]
  - SOMNOLENCE [None]
  - VOMITING [None]
  - WITHDRAWAL SYNDROME [None]
